FAERS Safety Report 15253595 (Version 1)
Quarter: 2018Q3

REPORT INFORMATION
  Report Type: Report from Study
  Country: DE (occurrence: DE)
  Receive Date: 20180808
  Receipt Date: 20180808
  Transmission Date: 20181010
  Serious: Yes (Hospitalization)
  Sender: FDA-Public Use
  Company Number: DE-CELLTRION INC.-2018DE021739

PATIENT

DRUGS (1)
  1. INFLECTRA [Suspect]
     Active Substance: INFLIXIMAB-DYYB
     Indication: CROHN^S DISEASE
     Dosage: 290 MG, CYCLIC (EVERY 8 WEEKS)
     Route: 042
     Dates: start: 20170914, end: 20180622

REACTIONS (1)
  - Spondylitis [Recovered/Resolved]

NARRATIVE: CASE EVENT DATE: 20180622
